FAERS Safety Report 12716591 (Version 1)
Quarter: 2016Q3

REPORT INFORMATION
  Report Type: Spontaneous
  Country: TW (occurrence: TW)
  Receive Date: 20160906
  Receipt Date: 20160906
  Transmission Date: 20161109
  Serious: Yes (Death)
  Sender: FDA-Public Use
  Company Number: TW-ACTELION-A-CH2016-141445

PATIENT
  Sex: Female

DRUGS (7)
  1. REVATIO [Concomitant]
     Active Substance: SILDENAFIL CITRATE
     Dosage: 20 MG, UNK
  2. LANOLIN. [Concomitant]
     Active Substance: LANOLIN
     Dosage: 25 MG, UNK
  3. NATRILIX [Concomitant]
     Active Substance: INDAPAMIDE
     Dosage: 1.5 MG, UNK
  4. SPIROTONE [Concomitant]
     Dosage: 25 MG, UNK
  5. LASIX [Concomitant]
     Active Substance: FUROSEMIDE
     Dosage: 40 UNK, UNK
  6. TRACLEER [Suspect]
     Active Substance: BOSENTAN
     Indication: RIGHT-TO-LEFT CARDIAC SHUNT
     Dosage: 125 MG, BID
     Route: 048
     Dates: start: 20160512, end: 201608
  7. WARFARIN [Concomitant]
     Active Substance: WARFARIN
     Dosage: 1 MG, UNK

REACTIONS (1)
  - Haemoptysis [Fatal]

NARRATIVE: CASE EVENT DATE: 201608
